FAERS Safety Report 17664822 (Version 2)
Quarter: 2020Q2

REPORT INFORMATION
  Report Type: Spontaneous
  Country: US (occurrence: US)
  Receive Date: 20200414
  Receipt Date: 20200602
  Transmission Date: 20200713
  Serious: No
  Sender: FDA-Public Use
  Company Number: US-PFIZER INC-2020149996

PATIENT
  Age: 9 Year
  Sex: Male

DRUGS (1)
  1. GENOTROPIN [Suspect]
     Active Substance: SOMATROPIN
     Dosage: 1.1 MG, DAILY

REACTIONS (6)
  - Fatigue [Unknown]
  - Weight increased [Unknown]
  - Anxiety [Unknown]
  - Device breakage [Unknown]
  - Mood altered [Unknown]
  - Product dose omission [Unknown]
